FAERS Safety Report 9694606 (Version 2)
Quarter: 2013Q4

REPORT INFORMATION
  Report Type: Report from Study
  Country: AU (occurrence: AU)
  Receive Date: 20131118
  Receipt Date: 20131227
  Transmission Date: 20140711
  Serious: Yes (Other)
  Sender: FDA-Public Use
  Company Number: AU-ROCHE-1301390

PATIENT
  Age: 37 Year
  Sex: Female

DRUGS (1)
  1. ACTEMRA [Suspect]
     Indication: RHEUMATOID ARTHRITIS
     Route: 042
     Dates: start: 20110505

REACTIONS (3)
  - Ingrown hair [Recovered/Resolved]
  - Hidradenitis [Recovered/Resolved]
  - Subcutaneous abscess [Recovered/Resolved]
